FAERS Safety Report 19767305 (Version 2)
Quarter: 2021Q3

REPORT INFORMATION
  Report Type: Spontaneous
  Country: US (occurrence: US)
  Receive Date: 20210830
  Receipt Date: 20210929
  Transmission Date: 20211014
  Serious: No
  Sender: FDA-Public Use
  Company Number: US-ASTRAZENECA-2021A660304

PATIENT
  Sex: Male

DRUGS (2)
  1. BYDUREON BCISE [Suspect]
     Active Substance: EXENATIDE
     Dosage: 2.0MG UNKNOWN
     Route: 058
  2. BYDUREON [Concomitant]
     Active Substance: EXENATIDE
     Route: 058

REACTIONS (8)
  - Drug dose omission by device [Unknown]
  - Haemorrhage [Unknown]
  - Blood glucose increased [Unknown]
  - Product dose omission issue [Unknown]
  - Device leakage [Unknown]
  - Blood pressure increased [Unknown]
  - Device defective [Unknown]
  - Device issue [Unknown]
